FAERS Safety Report 7751580-X (Version None)
Quarter: 2011Q3

REPORT INFORMATION
  Report Type: 
  Country: None (occurrence: None)
  Receive Date: 20110914
  Receipt Date: 20110909
  Transmission Date: 20111222
  Serious: Yes (Other)
  Sender: FDA-Public Use
  Company Number: PHHY2011BR80625

PATIENT
  Age: 35 Year
  Sex: Male

DRUGS (10)
  1. INVEGA [Concomitant]
  2. LEVOTHYROXINE SODIUM [Concomitant]
  3. CLOZAPINE [Suspect]
     Indication: BIPOLAR DISORDER
     Dosage: 100 MG PLUS 25 MG BID
  4. TRILEPTAL [Interacting]
  5. CLONAZEPAM [Concomitant]
  6. DEPAKOTE [Concomitant]
     Dosage: 500 MG, UNK
  7. ZYPREXA [Concomitant]
  8. LAMICTAL [Concomitant]
  9. CITALOPRAM HYDROBROMIDE [Concomitant]
     Dosage: 2 TABS DAILY
  10. SEROQUEL [Concomitant]

REACTIONS (2)
  - VOMITING [None]
  - DRUG INTERACTION [None]
